FAERS Safety Report 20637560 (Version 1)
Quarter: 2022Q1

REPORT INFORMATION
  Report Type: Report from Study
  Country: IT (occurrence: IT)
  Receive Date: 20220325
  Receipt Date: 20220325
  Transmission Date: 20220424
  Serious: Yes (Other)
  Sender: FDA-Public Use
  Company Number: None

PATIENT
  Age: 79 Year
  Sex: Female

DRUGS (7)
  1. CLOPIDOGREL [Interacting]
     Active Substance: CLOPIDOGREL BISULFATE
     Indication: Thrombosis prophylaxis
     Dosage: 75 MG
     Route: 048
  2. WARFARIN [Interacting]
     Active Substance: WARFARIN
     Indication: Thrombosis prophylaxis
     Dosage: 1 DF; WARFARIN SODIUM
     Route: 048
  3. ATORVASTATIN [Concomitant]
     Active Substance: ATORVASTATIN
     Route: 048
  4. CARVEDILOL [Concomitant]
     Active Substance: CARVEDILOL
     Dosage: 12.5 MG
     Route: 048
  5. INSULIN NOS [Concomitant]
     Active Substance: INSULIN NOS
     Route: 058
  6. OMEPRAZOLE [Concomitant]
     Active Substance: OMEPRAZOLE
     Dosage: 20 MG
     Route: 048
  7. HALOPERIDOL [Concomitant]
     Active Substance: HALOPERIDOL
     Route: 048

REACTIONS (3)
  - Anaemia [Not Recovered/Not Resolved]
  - Haematoma [Not Recovered/Not Resolved]
  - Drug interaction [Unknown]

NARRATIVE: CASE EVENT DATE: 20211201
